FAERS Safety Report 24137193 (Version 1)
Quarter: 2024Q3

REPORT INFORMATION
  Report Type: Report from Study
  Country: GB (occurrence: GB)
  Receive Date: 20240725
  Receipt Date: 20240725
  Transmission Date: 20241017
  Serious: Yes (Hospitalization)
  Sender: ULTRAGENYX PHARMACEUTICAL
  Company Number: GB-ULTRAGENYX PHARMACEUTICAL INC.-GB-UGX-23-01218

PATIENT
  Age: 17 Year
  Sex: Male
  Weight: 52.9 kg

DRUGS (4)
  1. TRIHEPTANOIN [Suspect]
     Active Substance: TRIHEPTANOIN
     Indication: Fatty acid oxidation disorder
     Dosage: 9.5 MILLILITER, Q4H
     Route: 048
     Dates: start: 202001, end: 20230926
  2. FORCEVAL [AMINO ACIDS NOS;ELECTROLYTES NOS;FERROUS FUMARATE;NICOTINAMI [Concomitant]
     Indication: Product used for unknown indication
     Dosage: 1 DOSAGE FORM, Q12H
  3. LEVOCARNITINE [Concomitant]
     Active Substance: LEVOCARNITINE
     Indication: Product used for unknown indication
     Dosage: 450 MILLIGRAM, Q12H
     Route: 048
  4. .ALPHA.-TOCOPHEROL [Concomitant]
     Active Substance: .ALPHA.-TOCOPHEROL
     Indication: Product used for unknown indication
     Dosage: 1 MILLILITER, QD
     Route: 048

REACTIONS (4)
  - Diarrhoea [Recovering/Resolving]
  - Abdominal pain [Recovering/Resolving]
  - Rhabdomyolysis [Recovering/Resolving]
  - Abdominal pain upper [Unknown]

NARRATIVE: CASE EVENT DATE: 20230927
